FAERS Safety Report 17150837 (Version 1)
Quarter: 2019Q4

REPORT INFORMATION
  Report Type: Spontaneous
  Country: GB (occurrence: GB)
  Receive Date: 20191213
  Receipt Date: 20191213
  Transmission Date: 20200122
  Serious: Yes (Hospitalization, Other)
  Sender: FDA-Public Use
  Company Number: GB-SCIEGEN PHARMACEUTICALS INC-2019SCILIT00375

PATIENT
  Age: 93 Year
  Sex: Female

DRUGS (3)
  1. DONEPEZIL HYDROCHLORIDE TABLETS [Suspect]
     Active Substance: DONEPEZIL HYDROCHLORIDE
  2. CALCIUM SUPPLEMENTS [Concomitant]
     Active Substance: CALCIUM
  3. SODIUM DOCUSATE [Concomitant]
     Active Substance: DOCUSATE SODIUM

REACTIONS (2)
  - Myoclonus [Recovered/Resolved]
  - Immobile [Recovered/Resolved]
